FAERS Safety Report 21617542 (Version 1)
Quarter: 2022Q4

REPORT INFORMATION
  Report Type: Report from Study
  Country: DE (occurrence: None)
  Receive Date: 20221119
  Receipt Date: 20221119
  Transmission Date: 20230113
  Serious: Yes (Other)
  Sender: FDA-Public Use
  Company Number: DE-ROCHE-3217012

PATIENT
  Age: 54 Year
  Sex: Female
  Weight: 88 kg

DRUGS (3)
  1. ATEZOLIZUMAB [Suspect]
     Active Substance: ATEZOLIZUMAB
     Indication: Breast cancer
     Dosage: LAST DOSE BEFORE SAE 20/01/2022
     Route: 041
     Dates: start: 20210128, end: 20220120
  2. TRASTUZUMAB [Suspect]
     Active Substance: TRASTUZUMAB
     Indication: Breast cancer
     Dosage: LAST DOSE BEFORE SAE 24/MAR/2022
     Route: 041
     Dates: start: 20210331, end: 20220324
  3. PERTUZUMAB [Suspect]
     Active Substance: PERTUZUMAB
     Indication: Breast cancer
     Route: 042
     Dates: start: 20210331, end: 20220324

REACTIONS (2)
  - Pancreatic enzymes increased [Recovered/Resolved]
  - Autoimmune colitis [Recovered/Resolved]

NARRATIVE: CASE EVENT DATE: 20220110
